FAERS Safety Report 4631226-X (Version None)
Quarter: 2005Q2

REPORT INFORMATION
  Report Type: 
  Country: None (occurrence: None)
  Receive Date: 20050406
  Receipt Date: 20050324
  Transmission Date: 20051028
  Serious: Yes (Other)
  Sender: FDA-Public Use
  Company Number: HQWYE400828MAR05

PATIENT
  Age: 70 Year
  Sex: Male
  Weight: 77.18 kg

DRUGS (1)
  1. CORDARONE [Suspect]
     Dosage: ORAL
     Route: 048
     Dates: start: 19960101, end: 19960101

REACTIONS (2)
  - BLINDNESS UNILATERAL [None]
  - NEUROPATHY [None]
